FAERS Safety Report 18979222 (Version 1)
Quarter: 2021Q1

REPORT INFORMATION
  Report Type: Spontaneous
  Country: US (occurrence: US)
  Receive Date: 20210308
  Receipt Date: 20210308
  Transmission Date: 20210420
  Serious: Yes (Other)
  Sender: FDA-Public Use
  Company Number: US-DRREDDYS-USA/USA/21/0132473

PATIENT
  Age: 18 Year
  Sex: Male

DRUGS (1)
  1. ZENATANE [Suspect]
     Active Substance: ISOTRETINOIN
     Indication: PRODUCT USED FOR UNKNOWN INDICATION
     Dosage: RMA ISSUE DATE: 10/27/2020 11:39:02 AM, 11/20/2020 3:44:18 PM, 1/6/2021 8:06:52 AM, 1/8/2021 2:06:05
     Route: 048

REACTIONS (1)
  - Depression [Unknown]
